FAERS Safety Report 23038056 (Version 1)
Quarter: 2023Q4

REPORT INFORMATION
  Report Type: Spontaneous
  Country: GB (occurrence: GB)
  Receive Date: 20231006
  Receipt Date: 20231006
  Transmission Date: 20240110
  Serious: Yes (Other)
  Sender: FDA-Public Use
  Company Number: GB-MHRA-MED-202309232149324540-KFDPQ

PATIENT
  Sex: Male
  Weight: 7 kg

DRUGS (1)
  1. IBUPROFEN [Suspect]
     Active Substance: IBUPROFEN
     Indication: COVID-19
     Dosage: 2.5 3 TIMES A DAY; ;
     Route: 065

REACTIONS (1)
  - Body temperature decreased [Recovering/Resolving]

NARRATIVE: CASE EVENT DATE: 20230923
